FAERS Safety Report 7365823-8 (Version None)
Quarter: 2011Q1

REPORT INFORMATION
  Report Type: 
  Country: None (occurrence: None)
  Receive Date: 20110309
  Receipt Date: 20110303
  Transmission Date: 20110831
  Serious: Yes (Death, Hospitalization)
  Sender: FDA-Public Use
  Company Number: 2011SP006719

PATIENT
  Age: 66 Year
  Sex: Male

DRUGS (1)
  1. ONCOTICE [Suspect]
     Indication: BLADDER CANCER
     Dates: start: 20080805, end: 20100426

REACTIONS (9)
  - DIZZINESS [None]
  - PERSONALITY CHANGE [None]
  - BOVINE TUBERCULOSIS [None]
  - HALLUCINATION [None]
  - WEIGHT DECREASED [None]
  - BACK PAIN [None]
  - MEMORY IMPAIRMENT [None]
  - FATIGUE [None]
  - ANXIETY [None]
